FAERS Safety Report 6855749-8 (Version None)
Quarter: 2010Q3

REPORT INFORMATION
  Report Type: 
  Country: None (occurrence: None)
  Receive Date: 20100719
  Receipt Date: 20100707
  Transmission Date: 20110219
  Serious: Yes (Hospitalization)
  Sender: FDA-Public Use
  Company Number: TR-ELI_LILLY_AND_COMPANY-TR201007002058

PATIENT
  Sex: Female
  Weight: 3.42 kg

DRUGS (3)
  1. HUMULIN R [Suspect]
     Dosage: 4 IU, EACH MORNING
     Route: 064
  2. HUMULIN R [Suspect]
     Dosage: 6 IU, EACH EVENING
     Route: 064
  3. FERPLEX [Concomitant]
     Indication: MINERAL SUPPLEMENTATION
     Dosage: UNK UNK, 2/D
     Route: 064

REACTIONS (2)
  - BLOOD COUNT ABNORMAL [None]
  - DRUG EXPOSURE DURING PREGNANCY [None]
